FAERS Safety Report 22216699 (Version 1)
Quarter: 2023Q2

REPORT INFORMATION
  Report Type: Spontaneous
  Country: US (occurrence: US)
  Receive Date: 20230417
  Receipt Date: 20230417
  Transmission Date: 20230722
  Serious: No
  Sender: FDA-Public Use
  Company Number: US-ENDO PHARMACEUTICALS INC-2022-003567

PATIENT
  Sex: Male

DRUGS (2)
  1. AVEED [Suspect]
     Active Substance: TESTOSTERONE UNDECANOATE
     Indication: Hormone replacement therapy
     Dosage: UNK UNKNOWN, UNKNOWN
     Route: 065
     Dates: start: 20220602
  2. AVEED [Suspect]
     Active Substance: TESTOSTERONE UNDECANOATE
     Dosage: UNK UNKNOWN, UNKNOWN (STARTED SEVERAL YEARS BACK)
     Route: 065

REACTIONS (2)
  - Hypoaesthesia [Recovering/Resolving]
  - Sensory disturbance [Unknown]

NARRATIVE: CASE EVENT DATE: 20220602
